FAERS Safety Report 22676043 (Version 4)
Quarter: 2023Q4

REPORT INFORMATION
  Report Type: Report from Study
  Country: CA (occurrence: CA)
  Receive Date: 20230706
  Receipt Date: 20231106
  Transmission Date: 20240110
  Serious: Yes (Hospitalization, Other)
  Sender: FDA-Public Use
  Company Number: CA-JNJFOC-20230700558

PATIENT
  Age: 37 Year
  Sex: Female

DRUGS (1)
  1. REMICADE [Suspect]
     Active Substance: INFLIXIMAB
     Indication: Crohn^s disease
     Dosage: 5 MG/KG, INFUSION DATE- 04-NOV-2014?V2: EXPIRY DATE: 28-FEB-2026
     Route: 042
     Dates: start: 20140711

REACTIONS (6)
  - Scar [Not Recovered/Not Resolved]
  - Intestinal obstruction [Recovered/Resolved]
  - Crohn^s disease [Unknown]
  - Oral candidiasis [Not Recovered/Not Resolved]
  - Tooth infection [Unknown]
  - Adverse event [Unknown]

NARRATIVE: CASE EVENT DATE: 20230629
